FAERS Safety Report 9383782 (Version 1)
Quarter: 2013Q3

REPORT INFORMATION
  Report Type: Spontaneous
  Country: US (occurrence: US)
  Receive Date: 20130704
  Receipt Date: 20130704
  Transmission Date: 20140515
  Serious: No
  Sender: FDA-Public Use
  Company Number: US-009507513-1307USA000846

PATIENT
  Sex: 0
  Weight: 81.18 kg

DRUGS (1)
  1. NEXPLANON [Suspect]
     Dosage: UNK
     Route: 059
     Dates: start: 20130628

REACTIONS (3)
  - Device difficult to use [Unknown]
  - Device kink [Not Recovered/Not Resolved]
  - Product quality issue [Unknown]
